FAERS Safety Report 8155803-7 (Version None)
Quarter: 2012Q1

REPORT INFORMATION
  Report Type: 
  Country: None (occurrence: None)
  Receive Date: 20120215
  Receipt Date: 20120202
  Transmission Date: 20120608
  Serious: Yes (Other)
  Sender: FDA-Public Use
  Company Number: 2012MA000932

PATIENT
  Age: 73 Year

DRUGS (5)
  1. RAMIPRIL [Concomitant]
  2. FLUOXETINE HCL [Concomitant]
  3. RISPERIDONE [Suspect]
     Indication: BIPOLAR DISORDER
     Dosage: 2 MG, BID, PO
     Route: 048
     Dates: end: 20110722
  4. SEROQUEL [Suspect]
     Indication: BIPOLAR DISORDER
     Dosage: 50 MG, QD, PO
     Route: 048
     Dates: start: 20110722, end: 20111115
  5. LYRICA [Concomitant]

REACTIONS (2)
  - TARDIVE DYSKINESIA [None]
  - TONGUE DISORDER [None]
